FAERS Safety Report 17940356 (Version 3)
Quarter: 2020Q3

REPORT INFORMATION
  Report Type: Report from Study
  Country: FR (occurrence: FR)
  Receive Date: 20200624
  Receipt Date: 20200722
  Transmission Date: 20201103
  Serious: Yes (Hospitalization)
  Sender: FDA-Public Use
  Company Number: NVSC2020FR177505

PATIENT
  Age: 39 Year
  Sex: Male
  Weight: 73 kg

DRUGS (2)
  1. ERELZI [Suspect]
     Active Substance: ETANERCEPT-SZZS
     Indication: PRODUCT USED FOR UNKNOWN INDICATION
     Dosage: 70 MG, QW  (7 DAYS WITH EVERY INTAKE)
     Route: 065
     Dates: start: 20191222
  2. ERELZI [Suspect]
     Active Substance: ETANERCEPT-SZZS
     Dosage: 50 MG, UNKNOWN
     Route: 058
     Dates: start: 20200510, end: 20200524

REACTIONS (1)
  - Pasteurella infection [Recovered/Resolved]

NARRATIVE: CASE EVENT DATE: 20200505
